FAERS Safety Report 4530217-7 (Version None)
Quarter: 2004Q4

REPORT INFORMATION
  Report Type: 
  Country: None (occurrence: None)
  Receive Date: 20041216
  Receipt Date: 20041216
  Transmission Date: 20050328
  Serious: Yes (Other)
  Sender: FDA-Public Use
  Company Number: None

PATIENT
  Sex: Male
  Weight: 81.6475 kg

DRUGS (1)
  1. ACCUTANE [Suspect]
     Dosage: ORAL
     Route: 048
     Dates: start: 19940601, end: 19941130

REACTIONS (4)
  - DRY SKIN [None]
  - HAIR TEXTURE ABNORMAL [None]
  - LIP DRY [None]
  - NASAL DRYNESS [None]
